FAERS Safety Report 9281207 (Version 2)
Quarter: 2013Q2

REPORT INFORMATION
  Report Type: Report from Study
  Country: US (occurrence: US)
  Receive Date: 20130509
  Receipt Date: 20130612
  Transmission Date: 20140414
  Serious: Yes (Other)
  Sender: FDA-Public Use
  Company Number: US-MYLANLABS-2013S1009650

PATIENT
  Age: 29 Year
  Sex: Female
  Weight: 57.15 kg

DRUGS (2)
  1. AMNESTEEM CAPSULES [Suspect]
     Dates: start: 20130115, end: 20130423
  2. INTRAUTERINE CONTRACEPTIVE DEVICE [Suspect]
     Indication: CONTRACEPTION
     Dates: start: 20130307

REACTIONS (2)
  - Urosepsis [Not Recovered/Not Resolved]
  - Urinary tract infection [Not Recovered/Not Resolved]
